FAERS Safety Report 16840362 (Version 3)
Quarter: 2019Q3

REPORT INFORMATION
  Report Type: Spontaneous
  Country: BE (occurrence: BE)
  Receive Date: 20190923
  Receipt Date: 20190929
  Transmission Date: 20191005
  Serious: Yes (Hospitalization, Other)
  Sender: FDA-Public Use
  Company Number: PHHY2019BE209973

PATIENT
  Age: 85 Year
  Sex: Female

DRUGS (1)
  1. DICLOFENAC [Suspect]
     Active Substance: DICLOFENAC
     Indication: MUSCULOSKELETAL DISCOMFORT
     Dosage: 100 MG, QD
     Route: 065

REACTIONS (14)
  - Faecaloma [Recovered/Resolved]
  - Colitis [Unknown]
  - Large intestinal ulcer haemorrhage [Unknown]
  - Large intestinal stenosis [Unknown]
  - Large intestinal ulcer [Unknown]
  - Small intestinal ulcer haemorrhage [Recovered/Resolved]
  - Gastrointestinal disorder [Unknown]
  - Haemoglobin decreased [Recovered/Resolved]
  - Iron deficiency anaemia [Recovered/Resolved]
  - Fatigue [Recovered/Resolved]
  - Intestinal mucosal hypertrophy [Unknown]
  - Gastric ulcer [Recovered/Resolved]
  - Intestinal ulcer [Unknown]
  - Gastrointestinal ulcer haemorrhage [Unknown]
